FAERS Safety Report 15163533 (Version 1)
Quarter: 2018Q3

REPORT INFORMATION
  Report Type: Spontaneous
  Country: DE (occurrence: DE)
  Receive Date: 20180719
  Receipt Date: 20180719
  Transmission Date: 20181010
  Serious: Yes (Other)
  Sender: FDA-Public Use
  Company Number: DE-TEVA-2018-DE-927579

PATIENT
  Age: 76 Year
  Sex: Female
  Weight: 61 kg

DRUGS (4)
  1. SIMVA ARISTO 30 MG FILMTABLETTEN [Concomitant]
     Dosage: PZN: 10144817
     Route: 065
  2. CIPROFLOXACIN RATIOPHARM 250 MG FILMTABLETTEN [Suspect]
     Active Substance: CIPROFLOXACIN
     Indication: CYSTITIS
     Dosage: PZN: 06575227
     Dates: start: 20180428, end: 20180430
  3. THEOPHYLLIN RETARD RATIOPHARM 375 MG KAPSELN [Concomitant]
     Dosage: PZN: 01001303
  4. ASS 100 ? 1 A PHARMA TAH TABLETTE [Concomitant]
     Dosage: PZN: 06312077

REACTIONS (1)
  - Melaena [Recovered/Resolved]

NARRATIVE: CASE EVENT DATE: 20180501
